FAERS Safety Report 6936094-9 (Version None)
Quarter: 2010Q3

REPORT INFORMATION
  Report Type: 
  Country: None (occurrence: None)
  Receive Date: 20100817
  Receipt Date: 20100809
  Transmission Date: 20110219
  Serious: Yes (Death, Hospitalization)
  Sender: FDA-Public Use
  Company Number: 2010MA001605

PATIENT
  Age: 73 Year
  Sex: Female

DRUGS (7)
  1. EPIRUBICIN HYDROCHLORIDE [Suspect]
     Indication: OESOPHAGEAL CARCINOMA
     Dosage: 90 MG QD IV
     Route: 042
     Dates: start: 20100305
  2. CISPLATIN [Suspect]
     Indication: OESOPHAGEAL CARCINOMA
     Dosage: 56 MG QD IV
     Route: 042
     Dates: start: 20100305
  3. CAPECITABINE [Suspect]
     Indication: OESOPHAGEAL CARCINOMA
     Dosage: 2500MG; Q3W; PO
     Route: 048
     Dates: start: 20100305
  4. METOCLOPRAMIDE [Concomitant]
  5. BENDROFLUMETHIAZIDE [Concomitant]
  6. LISINOPRIL [Concomitant]
  7. SIMVASTATIN [Concomitant]

REACTIONS (3)
  - BRONCHOPNEUMONIA [None]
  - COLITIS ISCHAEMIC [None]
  - LARGE INTESTINE PERFORATION [None]
